FAERS Safety Report 20672766 (Version 4)
Quarter: 2022Q2

REPORT INFORMATION
  Report Type: Report from Study
  Country: CN (occurrence: CN)
  Receive Date: 20220405
  Receipt Date: 20220523
  Transmission Date: 20220721
  Serious: Yes (Hospitalization, Other)
  Sender: FDA-Public Use
  Company Number: CN-NOVARTISPH-NVSC2022CN074736

PATIENT
  Age: 47 Year
  Sex: Female
  Weight: 59.5 kg

DRUGS (4)
  1. LETROZOLE [Suspect]
     Active Substance: LETROZOLE
     Indication: Breast cancer
     Dosage: 2.5 MG, QD
     Route: 048
     Dates: start: 20210119, end: 20220314
  2. LETROZOLE [Suspect]
     Active Substance: LETROZOLE
     Dosage: 2.5 MG, QD
     Route: 048
     Dates: start: 20220316, end: 20220317
  3. VITAMIN E [Concomitant]
     Active Substance: .ALPHA.-TOCOPHEROL
     Indication: Seborrhoeic dermatitis
     Dosage: UNK, QD (ROUTE: AD US EXT)
     Route: 065
     Dates: start: 20220224, end: 20220315
  4. SULFUR [Concomitant]
     Active Substance: SULFUR
     Indication: Seborrhoeic dermatitis
     Dosage: UNK UNK, BID(ROUTE: AD US EXT)
     Route: 065
     Dates: start: 20220305, end: 20220315

REACTIONS (10)
  - Pancreatitis acute [Unknown]
  - Hyperamylasaemia [Recovered/Resolved]
  - Abdominal distension [Recovered/Resolved]
  - Nephrolithiasis [Unknown]
  - Hepatic steatosis [Not Recovered/Not Resolved]
  - Renal cyst [Not Recovered/Not Resolved]
  - Blood immunoglobulin E increased [Unknown]
  - Urinary tract infection [Unknown]
  - Seborrhoeic dermatitis [Unknown]
  - Hyperuricaemia [Unknown]

NARRATIVE: CASE EVENT DATE: 20220214
